FAERS Safety Report 4983830-7 (Version None)
Quarter: 2006Q1

REPORT INFORMATION
  Report Type: 
  Country: None (occurrence: None)
  Receive Date: 20060301
  Receipt Date: 20051219
  Transmission Date: 20060701
  Serious: No
  Sender: FDA-Public Use
  Company Number: S05-USA-05273-01

PATIENT
  Age: 81 Year
  Sex: Female

DRUGS (6)
  1. NAMENDA [Suspect]
     Indication: DEMENTIA ALZHEIMER'S TYPE
     Dosage: 5 MG QD PO
     Route: 048
     Dates: start: 20051202, end: 20051208
  2. NAMENDA [Suspect]
     Indication: DEMENTIA ALZHEIMER'S TYPE
     Dosage: 5 MG BID PO
     Route: 048
     Dates: start: 20051209, end: 20051215
  3. NAMENDA [Suspect]
     Indication: DEMENTIA ALZHEIMER'S TYPE
     Dosage: 15 MG QD PO
     Route: 048
     Dates: start: 20051216
  4. ARICEPT [Concomitant]
  5. BLOOD PRESSURE MEDICATIONS (NOS) [Concomitant]
  6. ANTI-DEPRESSANT (NOS) [Concomitant]

REACTIONS (2)
  - AGGRESSION [None]
  - CONFUSIONAL STATE [None]
